FAERS Safety Report 4423298-2 (Version None)
Quarter: 2004Q3

REPORT INFORMATION
  Report Type: 
  Country: None (occurrence: None)
  Receive Date: 20040811
  Receipt Date: 20040720
  Transmission Date: 20050211
  Serious: Yes (Other)
  Sender: FDA-Public Use
  Company Number: US-GLAXOSMITHKLINE-A0521618A

PATIENT
  Age: 56 Year
  Sex: Female

DRUGS (1)
  1. BACTROBAN [Suspect]
     Indication: NASAL DISCOMFORT
     Route: 061
     Dates: start: 20040701

REACTIONS (12)
  - AURICULAR SWELLING [None]
  - DEAFNESS [None]
  - DIARRHOEA [None]
  - EAR PAIN [None]
  - EAR PRURITUS [None]
  - EYE DISORDER [None]
  - EYELID PTOSIS [None]
  - HYPERSENSITIVITY [None]
  - MUSCLE TIGHTNESS [None]
  - MUSCLE TWITCHING [None]
  - PRURITUS [None]
  - SENSATION OF PRESSURE IN EAR [None]
